FAERS Safety Report 21876491 (Version 1)
Quarter: 2023Q1

REPORT INFORMATION
  Report Type: Other
  Country: CA (occurrence: CA)
  Receive Date: 20230118
  Receipt Date: 20230118
  Transmission Date: 20230418
  Serious: Yes (Hospitalization)
  Sender: FDA-Public Use
  Company Number: CA-CELLTRION INC.-2023CA000433

PATIENT

DRUGS (8)
  1. RITUXIMAB [Suspect]
     Active Substance: RITUXIMAB
     Indication: Product used for unknown indication
     Dosage: 770 MILLIGRAM, ONCE
     Route: 042
  2. CISPLATIN [Suspect]
     Active Substance: CISPLATIN
     Indication: Product used for unknown indication
     Dosage: 204.0 MILLIGRAM, ONCE
     Route: 042
  3. CYTARABINE [Suspect]
     Active Substance: CYTARABINE
     Indication: Product used for unknown indication
     Dosage: 4080.0 MILLIGRAM, 1 EVERY 1 DAYS
  4. DEXAMETHASONE [Suspect]
     Active Substance: DEXAMETHASONE
     Indication: Product used for unknown indication
     Dosage: 40.0 MILLIGRAM, 1 EVERY 1 DAYS
  5. DEXAMETHASONE [Suspect]
     Active Substance: DEXAMETHASONE
     Indication: Product used for unknown indication
     Dosage: 2.0 DROP, 1 EVERY 6 HOURS
     Route: 047
  6. EMEND [Suspect]
     Active Substance: APREPITANT
     Indication: Product used for unknown indication
     Dosage: UNK
  7. FILGRASTIM [Suspect]
     Active Substance: FILGRASTIM
     Indication: Product used for unknown indication
     Dosage: 6.0 MILLIGRAM, EVERY DAYS
  8. PANTOPRAZOLE MAGNESIUM [Suspect]
     Active Substance: PANTOPRAZOLE MAGNESIUM
     Indication: Product used for unknown indication
     Dosage: 40.0 MILLIGRAM

REACTIONS (6)
  - Feeding disorder [Recovered/Resolved]
  - Fluid intake reduced [Recovered/Resolved]
  - Neutrophil count decreased [Recovered/Resolved]
  - Dysgeusia [Recovered/Resolved]
  - White blood cell count decreased [Recovered/Resolved]
  - Vomiting [Recovered/Resolved]
